FAERS Safety Report 16464526 (Version 1)
Quarter: 2019Q3

REPORT INFORMATION
  Report Type: Spontaneous
  Country: US (occurrence: US)
  Receive Date: 20190620
  Receipt Date: 20190620
  Transmission Date: 20191004
  Serious: Yes (Other)
  Sender: FDA-Public Use
  Company Number: None

PATIENT
  Age: 71 Year
  Sex: Female
  Weight: 108 kg

DRUGS (1)
  1. HYDRALAZINE [Suspect]
     Active Substance: HYDRALAZINE HYDROCHLORIDE
     Indication: HYPERTENSION
     Dosage: ?          QUANTITY:4 TABLET(S);?
     Route: 048
     Dates: start: 20190615, end: 20190617

REACTIONS (4)
  - Malaise [None]
  - Rash [None]
  - Somnolence [None]
  - Hypersensitivity [None]

NARRATIVE: CASE EVENT DATE: 20190615
